FAERS Safety Report 12625735 (Version 1)
Quarter: 2016Q3

REPORT INFORMATION
  Report Type: Spontaneous
  Country: GB (occurrence: GB)
  Receive Date: 20160805
  Receipt Date: 20160805
  Transmission Date: 20161109
  Serious: Yes (Other)
  Sender: FDA-Public Use
  Company Number: GB-PFIZER INC-2016368637

PATIENT
  Sex: Female

DRUGS (2)
  1. HERCEPTIN [Suspect]
     Active Substance: TRASTUZUMAB
     Dosage: 600 MG, CYCLIC
     Route: 058
  2. RAMIPRIL. [Suspect]
     Active Substance: RAMIPRIL
     Dosage: UNK
     Route: 065

REACTIONS (15)
  - Sleep disorder [Unknown]
  - Malaise [Unknown]
  - Hyperhidrosis [Unknown]
  - Oedema peripheral [Unknown]
  - Insomnia [Not Recovered/Not Resolved]
  - Constipation [Unknown]
  - Paraesthesia [Unknown]
  - Fatigue [Not Recovered/Not Resolved]
  - Muscle spasms [Unknown]
  - Sleep disorder [Not Recovered/Not Resolved]
  - Urinary tract infection [Unknown]
  - Hyperaesthesia [Unknown]
  - Dry skin [Unknown]
  - Nausea [Unknown]
  - Pain [Unknown]
